FAERS Safety Report 8772896 (Version 2)
Quarter: 2013Q1

REPORT INFORMATION
  Report Type: Spontaneous
  Country: US (occurrence: US)
  Receive Date: 20120907
  Receipt Date: 20130218
  Transmission Date: 20140127
  Serious: Yes (Hospitalization, Other)
  Sender: FDA-Public Use
  Company Number: US-BAYER-2012-092179

PATIENT
  Age: 38 Year
  Sex: Female
  Weight: 72.56 kg

DRUGS (7)
  1. YASMIN [Suspect]
     Indication: CONTRACEPTION
     Dosage: UNK
     Dates: start: 200701, end: 200807
  2. OCELLA [Suspect]
     Dosage: UNK
     Dates: start: 200807, end: 20090709
  3. YAZ [Suspect]
  4. SYNTHROID [Concomitant]
     Indication: HYPOTHYROIDISM
     Dosage: 0.15 MG, UNK
     Dates: start: 1999
  5. TOPAMAX [Concomitant]
     Indication: HEADACHE
     Dosage: UNK
     Dates: start: 200703, end: 200707
  6. VITAMIN D [Concomitant]
     Dosage: 50000 UNITS, BIW
  7. IMITREX [Concomitant]
     Indication: MIGRAINE
     Dosage: UNK UNK, PRN

REACTIONS (7)
  - Cerebrovascular accident [None]
  - Pulmonary embolism [Recovered/Resolved]
  - Pulmonary infarction [None]
  - Emotional distress [None]
  - Injury [None]
  - Pain [None]
  - Pain [Recovered/Resolved]
